FAERS Safety Report 11753623 (Version 1)
Quarter: 2015Q4

REPORT INFORMATION
  Report Type: Spontaneous
  Country: US (occurrence: None)
  Receive Date: 20151118
  Receipt Date: 20151118
  Transmission Date: 20160304
  Serious: Yes (Life-Threatening)
  Sender: FDA-Public Use
  Company Number: None

PATIENT
  Age: 54 Year
  Sex: Male
  Weight: 78.47 kg

DRUGS (17)
  1. FENTANYL. [Concomitant]
     Active Substance: FENTANYL
  2. ROCURONIUM [Concomitant]
     Active Substance: ROCURONIUM BROMIDE
  3. PHENYLEPRINE [Concomitant]
  4. VASOPRESSIN. [Concomitant]
     Active Substance: VASOPRESSIN
  5. GLYPCOPYRROLATE [Concomitant]
  6. CEFAZOLIN [Concomitant]
     Active Substance: CEFAZOLIN
  7. OFIRMEV [Suspect]
     Active Substance: ACETAMINOPHEN
     Indication: PAIN
     Dosage: 1 VIAL
     Route: 042
  8. OXYGEN. [Concomitant]
     Active Substance: OXYGEN
  9. SEVOFLURANE. [Concomitant]
     Active Substance: SEVOFLURANE
  10. DEXAMETHASONE. [Concomitant]
     Active Substance: DEXAMETHASONE
  11. LACTATED RINGER^S SOLN. [Concomitant]
  12. PROPOFOL. [Concomitant]
     Active Substance: PROPOFOL
  13. EPINEPHRINE. [Concomitant]
     Active Substance: EPINEPHRINE
  14. ONDASETRON [Concomitant]
     Active Substance: ONDANSETRON
  15. ESMOLOL [Concomitant]
     Active Substance: ESMOLOL HYDROCHLORIDE
  16. MIDAZOLAM [Concomitant]
     Active Substance: MIDAZOLAM\MIDAZOLAM HYDROCHLORIDE
  17. NEOSTIGMINE [Concomitant]
     Active Substance: NEOSTIGMINE

REACTIONS (5)
  - Hypoxia [None]
  - Bronchospasm [None]
  - Hypotension [None]
  - Hypersensitivity [None]
  - Anaphylactic reaction [None]

NARRATIVE: CASE EVENT DATE: 20151013
